FAERS Safety Report 23067799 (Version 1)
Quarter: 2023Q4

REPORT INFORMATION
  Report Type: Report from Study
  Country: BR (occurrence: BR)
  Receive Date: 20231016
  Receipt Date: 20231016
  Transmission Date: 20240110
  Serious: Yes (Hospitalization)
  Sender: FDA-Public Use
  Company Number: BR-GENMAB-2023-01796

PATIENT
  Age: 66 Year
  Sex: Male

DRUGS (13)
  1. EPCORITAMAB [Suspect]
     Active Substance: EPCORITAMAB
     Indication: Follicular lymphoma
     Dosage: 0.16 MG PRIMING DOSE; C1, D1, TOTAL
     Route: 058
     Dates: start: 20230816, end: 20230816
  2. EPCORITAMAB [Suspect]
     Active Substance: EPCORITAMAB
     Dosage: 0.8 MG INTERMEDIATE DOSE; C1, D8, TOTAL
     Route: 058
     Dates: start: 20230823, end: 20230823
  3. EPCORITAMAB [Suspect]
     Active Substance: EPCORITAMAB
     Dosage: 48 MG FULL DOSE, EVERY 1 WEEKS
     Route: 058
     Dates: start: 20230830
  4. RITUXIMAB [Suspect]
     Active Substance: RITUXIMAB
     Indication: Follicular lymphoma
     Dosage: 738.56 MG, EVERY 1 WEEKS
     Route: 042
     Dates: start: 20230816
  5. LENALIDOMIDE [Suspect]
     Active Substance: LENALIDOMIDE
     Indication: Follicular lymphoma
     Dosage: 20 MG FROM DAY 1 TO 21, EVERY 1 DAYS
     Route: 048
     Dates: start: 20230816
  6. ONDANSETRON HYDROCHLORIDE [Concomitant]
     Active Substance: ONDANSETRON HYDROCHLORIDE
     Indication: Prophylaxis of nausea and vomiting
     Dosage: 8 MG, 3/DAYS
     Dates: start: 20230816
  7. OMEPRAZOLE SODIUM [Concomitant]
     Active Substance: OMEPRAZOLE SODIUM
     Indication: Prophylaxis against gastrointestinal ulcer
     Dosage: 20 MG, EVERY 1 DAYS
     Dates: start: 20230816
  8. ALLOPURINOL SODIUM [Concomitant]
     Active Substance: ALLOPURINOL SODIUM
     Indication: Prophylaxis
     Dosage: 300 MG, 3/DAYS
     Dates: start: 20230816
  9. SILPIN [Concomitant]
     Indication: Antifungal prophylaxis
     Dosage: 400/80MG, EVERY 1 DAYS
     Dates: start: 20230816
  10. ACYCLOVIR SODIUM [Concomitant]
     Active Substance: ACYCLOVIR SODIUM
     Indication: Antiviral prophylaxis
     Dosage: 400 MG, 2/DAYS
     Dates: start: 20230816
  11. ACETAMINOPHEN [Concomitant]
     Active Substance: ACETAMINOPHEN
     Indication: Prophylaxis
     Dosage: 1000 MG, AS NECESSARY
     Dates: start: 20230816
  12. DIPHENHYDRAMINE HYDROCHLORIDE [Concomitant]
     Active Substance: DIPHENHYDRAMINE HYDROCHLORIDE
     Indication: Prophylaxis
     Dosage: 50 MG, AS NECESSARY
     Dates: start: 20230816
  13. DEXAMETHASONE ACETATE [Concomitant]
     Active Substance: DEXAMETHASONE ACETATE
     Indication: Prophylaxis
     Dosage: 15 MG ORAL / IV, AS NECESSARY
     Dates: start: 20230816

REACTIONS (2)
  - Cytomegalovirus infection [Recovered/Resolved]
  - Febrile neutropenia [Recovered/Resolved]

NARRATIVE: CASE EVENT DATE: 20230926
